FAERS Safety Report 9253390 (Version 4)
Quarter: 2014Q1

REPORT INFORMATION
  Report Type: Spontaneous
  Country: US (occurrence: US)
  Receive Date: 20130425
  Receipt Date: 20140115
  Transmission Date: 20141002
  Serious: Yes (Hospitalization, Disabling)
  Sender: FDA-Public Use
  Company Number: US-ASTRAZENECA-2013SE27298

PATIENT
  Age: 582 Month
  Sex: Female
  Weight: 104.3 kg

DRUGS (16)
  1. NEXIUM [Suspect]
     Indication: GASTROOESOPHAGEAL REFLUX DISEASE
     Route: 048
     Dates: start: 20021204, end: 20100811
  2. NEXIUM [Suspect]
     Indication: GASTROOESOPHAGEAL REFLUX DISEASE
     Route: 048
     Dates: start: 20021204, end: 20100811
  3. NEXIUM [Suspect]
     Indication: GASTROOESOPHAGEAL REFLUX DISEASE
     Route: 048
     Dates: start: 20030214, end: 20101129
  4. NEXIUM [Suspect]
     Indication: GASTROOESOPHAGEAL REFLUX DISEASE
     Route: 048
     Dates: start: 20030214, end: 20101129
  5. PROTONIX [Concomitant]
     Route: 065
  6. TUMS [Concomitant]
     Indication: DYSPEPSIA
     Dosage: EVERY DAY
  7. ASPIRIN [Concomitant]
  8. BONIVA [Concomitant]
     Indication: BONE LOSS
  9. LYRICA [Concomitant]
     Indication: DEPRESSION
  10. LYRICA [Concomitant]
     Indication: PAIN
  11. LYRICA [Concomitant]
     Indication: DEPRESSION
  12. LYRICA [Concomitant]
     Indication: PAIN
  13. LORTAB [Concomitant]
     Indication: PAIN
     Dosage: 7.5 MG/ 325 MG, EVERY 8 HOURS AS NEEDED
     Route: 048
  14. PHENERGAN [Concomitant]
  15. VITAMIN D3 [Concomitant]
  16. BUSPIRONE [Concomitant]
     Route: 048

REACTIONS (27)
  - Foot fracture [Unknown]
  - Arthritis [Unknown]
  - Bone pain [Unknown]
  - Joint injury [Unknown]
  - Fall [Unknown]
  - Femur fracture [Unknown]
  - Toxicity to various agents [Unknown]
  - Syncope [Unknown]
  - Bone disorder [Unknown]
  - Lower limb fracture [Unknown]
  - Osteoporosis [Unknown]
  - Patella fracture [Unknown]
  - Overdose [Unknown]
  - Multiple fractures [Unknown]
  - Bone loss [Unknown]
  - Facial bones fracture [Unknown]
  - Vitamin D deficiency [Unknown]
  - Panic attack [Unknown]
  - Anxiety [Unknown]
  - Calcium deficiency [Unknown]
  - Traumatic arthritis [Unknown]
  - Senile osteoporosis [Unknown]
  - Osteoarthritis [Unknown]
  - Dizziness [Unknown]
  - Depression [Unknown]
  - Abdominal discomfort [Unknown]
  - Arthralgia [Unknown]
